FAERS Safety Report 5979836-1 (Version None)
Quarter: 2008Q4

REPORT INFORMATION
  Report Type: 
  Country: None (occurrence: None)
  Receive Date: 20081128
  Receipt Date: 20081114
  Transmission Date: 20090506
  Serious: Yes (Hospitalization, Other)
  Sender: FDA-Public Use
  Company Number: 2008AP002137

PATIENT
  Age: 23 Year
  Sex: Male

DRUGS (4)
  1. CARBAMAZEPINE [Suspect]
     Indication: POST-TRAUMATIC EPILEPSY
  2. CEPHALEXIN [Concomitant]
  3. METAMIZOLE SODIU (METAMIZOLE SODIUM) [Concomitant]
  4. ACETAMINOPHEN [Concomitant]

REACTIONS (8)
  - CYTOMEGALOVIRUS ANTIBODY POSITIVE [None]
  - DERMATITIS EXFOLIATIVE [None]
  - DRUG RASH WITH EOSINOPHILIA AND SYSTEMIC SYMPTOMS [None]
  - HEPATITIS [None]
  - HEPATOMEGALY [None]
  - LYMPHADENOPATHY [None]
  - PYREXIA [None]
  - RASH MACULO-PAPULAR [None]
